FAERS Safety Report 16755063 (Version 1)
Quarter: 2019Q3

REPORT INFORMATION
  Report Type: Spontaneous
  Country: US (occurrence: US)
  Receive Date: 20190711
  Receipt Date: 20190711
  Transmission Date: 20191005
  Serious: No
  Sender: FDA-Public Use
  Company Number: None

PATIENT
  Age: 60 Year
  Sex: Female
  Weight: 92.99 kg

DRUGS (1)
  1. ALBUTEROL HFA INHALER [Suspect]
     Active Substance: ALBUTEROL
     Indication: DYSPNOEA
     Route: 055
     Dates: start: 20190603, end: 20190628

REACTIONS (2)
  - Dyspnoea [None]
  - Headache [None]

NARRATIVE: CASE EVENT DATE: 20190603
